FAERS Safety Report 9611692 (Version 1)
Quarter: 2013Q4

REPORT INFORMATION
  Report Type: Spontaneous
  Country: US (occurrence: US)
  Receive Date: 20131010
  Receipt Date: 20131010
  Transmission Date: 20140711
  Serious: No
  Sender: FDA-Public Use
  Company Number: US-PFIZER INC-2013287857

PATIENT
  Sex: 0

DRUGS (1)
  1. FLUOROURACIL [Suspect]
     Indication: COLON CANCER STAGE IV
     Dosage: UNK

REACTIONS (2)
  - Disease progression [Unknown]
  - Colon cancer stage IV [Unknown]
